FAERS Safety Report 4659836-4 (Version None)
Quarter: 2005Q2

REPORT INFORMATION
  Report Type: 
  Country: None (occurrence: None)
  Receive Date: 20050510
  Receipt Date: 20050428
  Transmission Date: 20051028
  Serious: Yes (Other)
  Sender: FDA-Public Use
  Company Number: HQWYE463302MAY05

PATIENT
  Sex: Male

DRUGS (1)
  1. EFFEXOR XR [Suspect]
     Dosage: ORAL
     Route: 048
     Dates: start: 20010101

REACTIONS (3)
  - IMPULSE-CONTROL DISORDER [None]
  - PAEDOPHILIA [None]
  - VICTIM OF CHILD ABUSE [None]
